FAERS Safety Report 9210351 (Version 2)
Quarter: 2013Q4

REPORT INFORMATION
  Report Type: Report from Study
  Country: AT (occurrence: AT)
  Receive Date: 20130404
  Receipt Date: 20131028
  Transmission Date: 20140711
  Serious: Yes (Hospitalization)
  Sender: FDA-Public Use
  Company Number: PHHO2010AT15092

PATIENT
  Age: 59 Year
  Sex: Female
  Weight: 64 kg

DRUGS (4)
  1. MYFORTIC [Suspect]
     Indication: RENAL TRANSPLANT
     Dosage: PRN, BID
     Route: 048
     Dates: start: 20100911, end: 20101004
  2. MYFORTIC [Suspect]
     Dosage: PRN, BID
     Route: 048
     Dates: start: 20101015
  3. PROGRAF [Suspect]
     Indication: RENAL TRANSPLANT
     Dosage: PRN, BID
     Route: 048
     Dates: start: 20100911
  4. APREDNISLON [Suspect]
     Indication: RENAL TRANSPLANT
     Dosage: PRN, QD
     Route: 048
     Dates: start: 20100911

REACTIONS (1)
  - Klebsiella sepsis [Recovered/Resolved]
